FAERS Safety Report 7790595-2 (Version None)
Quarter: 2011Q3

REPORT INFORMATION
  Report Type: 
  Country: None (occurrence: None)
  Receive Date: 20110930
  Receipt Date: 20110923
  Transmission Date: 20111222
  Serious: Yes (Death)
  Sender: FDA-Public Use
  Company Number: DE-BAYER-200924190GPV

PATIENT
  Age: 43 Year
  Sex: Male
  Weight: 80 kg

DRUGS (2)
  1. TERAZOSIN HCL [Concomitant]
     Indication: PROSTATITIS
     Dosage: 1-2 MG
     Route: 065
     Dates: start: 20090323, end: 20090324
  2. CIPROFLOXACIN [Suspect]
     Indication: PROSTATITIS
     Dosage: 1000 MG (DAILY DOSE), BID, ORAL
     Route: 048
     Dates: start: 20090317, end: 20090324

REACTIONS (1)
  - COMPLETED SUICIDE [None]
